FAERS Safety Report 14339358 (Version 3)
Quarter: 2021Q3

REPORT INFORMATION
  Report Type: Spontaneous
  Country: DE (occurrence: DE)
  Receive Date: 20171230
  Receipt Date: 20210821
  Transmission Date: 20211014
  Serious: Yes (Other)
  Sender: FDA-Public Use
  Company Number: DE-AUROBINDO-AUR-APL-2017-46077

PATIENT
  Age: 53 Year
  Sex: Male

DRUGS (1)
  1. AMOXI?CLAVULAN AUROBINDO FILMTABLETTEN 875/125MG [Suspect]
     Active Substance: AMOXICILLIN\CLAVULANIC ACID
     Indication: BACTERIAL INFECTION
     Dosage: UNK UNK, TWO TIMES A DAY
     Route: 048
     Dates: start: 20171206, end: 20171206

REACTIONS (5)
  - Syncope [Unknown]
  - Nausea [Unknown]
  - Diarrhoea [Recovered/Resolved]
  - Illness [Recovered/Resolved]
  - Loss of consciousness [Recovered/Resolved]

NARRATIVE: CASE EVENT DATE: 20171206
